FAERS Safety Report 24228634 (Version 7)
Quarter: 2025Q1

REPORT INFORMATION
  Report Type: Report from Study
  Country: US (occurrence: US)
  Receive Date: 20240820
  Receipt Date: 20250310
  Transmission Date: 20250409
  Serious: Yes (Hospitalization, Other)
  Sender: TAKEDA
  Company Number: US-TAKEDA-2024TUS069764

PATIENT
  Age: 45 Year
  Sex: Female

DRUGS (5)
  1. LANADELUMAB [Suspect]
     Active Substance: LANADELUMAB
     Indication: Immune system disorder
     Dosage: 300 MILLIGRAM, Q2WEEKS
     Dates: start: 20240701
  2. LANADELUMAB [Suspect]
     Active Substance: LANADELUMAB
     Dosage: 300 MILLIGRAM, Q2WEEKS
     Dates: start: 202407
  3. LANADELUMAB [Suspect]
     Active Substance: LANADELUMAB
  4. EVEROLIMUS [Concomitant]
     Active Substance: EVEROLIMUS
  5. RUCONEST [Concomitant]
     Active Substance: CONESTAT ALFA

REACTIONS (11)
  - Renal disorder [Unknown]
  - Hereditary angioedema [Recovered/Resolved]
  - Poor venous access [Unknown]
  - Weight increased [Unknown]
  - Injection site irritation [Unknown]
  - Weight decreased [Unknown]
  - Product dose omission issue [Unknown]
  - Product distribution issue [Unknown]
  - Panic attack [Unknown]
  - Injection site erythema [Unknown]
  - Injection site pain [Unknown]

NARRATIVE: CASE EVENT DATE: 20240723
